FAERS Safety Report 7381274 (Version 2)
Quarter: 2012Q4

REPORT INFORMATION
  Report Type: Report from Study
  Country: US (occurrence: US)
  Receive Date: 20100507
  Receipt Date: 20121218
  Transmission Date: 20130627
  Serious: Yes (Other)
  Sender: FDA-Public Use
  Company Number: US-ROCHE-693461

PATIENT
  Sex: Female
  Weight: 78.9 kg

DRUGS (9)
  1. CAPECITABINE [Suspect]
     Indication: NEOPLASM MALIGNANT
     Route: 048
     Dates: start: 20080521, end: 20080929
  2. CAPECITABINE [Suspect]
     Dosage: EVERY 14 DAYS.
     Route: 048
     Dates: start: 20100212, end: 20100321
  3. OXALIPLATIN [Suspect]
     Indication: NEOPLASM MALIGNANT
     Dosage: DOSE: 160
     Route: 042
     Dates: start: 20080521, end: 20080929
  4. OXALIPLATIN [Suspect]
     Route: 042
  5. LYRICA [Concomitant]
     Indication: NEUROPATHY PERIPHERAL
     Route: 048
  6. ZOFRAN [Concomitant]
     Indication: NAUSEA
     Route: 048
  7. HCTZ [Concomitant]
     Indication: FLUID RETENTION
     Dosage: PRN
     Route: 048
  8. K-DUR [Concomitant]
     Indication: HYPOKALAEMIA
     Route: 048
  9. 5-FU [Concomitant]
     Dosage: 6 CYCLES
     Route: 065

REACTIONS (1)
  - Neoplasm malignant [Not Recovered/Not Resolved]
